FAERS Safety Report 17317493 (Version 1)
Quarter: 2020Q1

REPORT INFORMATION
  Report Type: Spontaneous
  Country: US (occurrence: US)
  Receive Date: 20200124
  Receipt Date: 20200124
  Transmission Date: 20200409
  Serious: No
  Sender: FDA-Public Use
  Company Number: US-OTSUKA-2019_032282

PATIENT
  Age: 70 Year
  Sex: Female

DRUGS (5)
  1. REXULTI [Suspect]
     Active Substance: BREXPIPRAZOLE
     Indication: ADJUVANT THERAPY
     Dosage: 1 MG, QD
     Route: 065
     Dates: end: 20190822
  2. QUETIAPINE. [Suspect]
     Active Substance: QUETIAPINE
     Indication: ADJUVANT THERAPY
     Dosage: 50 MG, QD
     Route: 065
     Dates: start: 20190829
  3. REXULTI [Suspect]
     Active Substance: BREXPIPRAZOLE
     Indication: MAJOR DEPRESSION
  4. PROZAC [Concomitant]
     Active Substance: FLUOXETINE HYDROCHLORIDE
     Indication: PRODUCT USED FOR UNKNOWN INDICATION
     Dosage: UNK
     Route: 065
  5. QUETIAPINE. [Suspect]
     Active Substance: QUETIAPINE
     Indication: MAJOR DEPRESSION

REACTIONS (3)
  - Depression [Unknown]
  - Inability to afford medication [Unknown]
  - Product dose omission [Unknown]

NARRATIVE: CASE EVENT DATE: 20190829
